FAERS Safety Report 8981269 (Version 3)
Quarter: 2013Q1

REPORT INFORMATION
  Report Type: Spontaneous
  Country: ZA (occurrence: ZA)
  Receive Date: 20121221
  Receipt Date: 20130325
  Transmission Date: 20140127
  Serious: Yes (Congenital Anomaly, Other)
  Sender: FDA-Public Use
  Company Number: ZA-NOVOPROD-367431

PATIENT
  Sex: Female
  Weight: 2.58 kg

DRUGS (4)
  1. NOVORAPID FLEXPEN [Suspect]
     Indication: GESTATIONAL DIABETES
     Dosage: UNK
     Route: 064
     Dates: start: 20120606, end: 20121102
  2. NOVORAPID FLEXPEN [Suspect]
     Indication: GESTATIONAL DIABETES
     Dosage: UNK
     Route: 064
     Dates: start: 20120606, end: 20121102
  3. PROTAPHANE FLEXPEN [Suspect]
     Indication: GESTATIONAL DIABETES
     Dosage: 8 IU, QD
     Route: 064
     Dates: start: 20120606, end: 20121102
  4. LASIX                              /00032601/ [Concomitant]
     Indication: HYPERTENSION
     Route: 064

REACTIONS (3)
  - Aorticopulmonary septal defect [Recovering/Resolving]
  - Premature baby [Recovering/Resolving]
  - Foetal exposure during pregnancy [Unknown]
